FAERS Safety Report 8399405-6 (Version None)
Quarter: 2012Q2

REPORT INFORMATION
  Report Type: 
  Country: None (occurrence: None)
  Receive Date: 20120323
  Receipt Date: 20110228
  Transmission Date: 20120825
  Serious: Yes (Hospitalization, Other)
  Sender: FDA-Public Use
  Company Number: 163-21880-11020664

PATIENT
  Age: 61 Year
  Sex: Female
  Weight: 113.3 kg

DRUGS (9)
  1. DEXAMETHASONE [Concomitant]
  2. COLACE (DOCUSATE SODIUM) [Concomitant]
  3. VELCADE [Concomitant]
  4. REVLIMID [Suspect]
     Indication: MULTIPLE MYELOMA
     Dosage: 5 MG, DAILY X 21 DAYS, PO
     Route: 048
     Dates: start: 20101221
  5. ZOLOFT [Concomitant]
  6. HEPARIN [Concomitant]
  7. OMEPRAZOLE [Concomitant]
  8. ZOFRAN [Concomitant]
  9. SYNTHROID [Concomitant]

REACTIONS (1)
  - DEEP VEIN THROMBOSIS [None]
